FAERS Safety Report 5080838-0 (Version None)
Quarter: 2006Q3

REPORT INFORMATION
  Report Type: 
  Country: None (occurrence: None)
  Receive Date: 20060811
  Receipt Date: 20060731
  Transmission Date: 20061208
  Serious: Yes (Other)
  Sender: FDA-Public Use
  Company Number: 2006069492

PATIENT
  Age: 37 Year
  Sex: Male
  Weight: 163.2949 kg

DRUGS (4)
  1. VISINE-A [Suspect]
     Indication: OCULAR HYPERAEMIA
     Dosage: 2 DROPS IN LEFT EYE ONCE, OPHTHALMIC
     Route: 047
     Dates: start: 20060526, end: 20060526
  2. OXCARBAZEPINE [Concomitant]
  3. ARIPIPRAZOLE [Concomitant]
  4. VENLAFAXINE HCL [Concomitant]

REACTIONS (7)
  - DRUG HYPERSENSITIVITY [None]
  - EYE DISCHARGE [None]
  - EYE IRRITATION [None]
  - EYELID OEDEMA [None]
  - PERIORBITAL OEDEMA [None]
  - THERAPY NON-RESPONDER [None]
  - VISION BLURRED [None]
